FAERS Safety Report 9635348 (Version 1)
Quarter: 2013Q4

REPORT INFORMATION
  Report Type: Spontaneous
  Country: US (occurrence: US)
  Receive Date: 20131021
  Receipt Date: 20131021
  Transmission Date: 20140711
  Serious: Yes (Other)
  Sender: FDA-Public Use
  Company Number: US-NAPPMUNDI-USA-2013-0102387

PATIENT
  Age: 69 Year
  Sex: Female

DRUGS (3)
  1. BUTRANS [Suspect]
     Indication: BACK PAIN
     Dosage: 5 MCG/HR, WEEKLY
     Route: 062
     Dates: start: 20130429
  2. BUTRANS [Suspect]
     Indication: ARTHRALGIA
  3. HYDROCODONE [Suspect]
     Indication: BREAKTHROUGH PAIN
     Dosage: 10/325, EVERY 6 HOURS
     Route: 048

REACTIONS (15)
  - Drug dependence [Unknown]
  - Drug withdrawal syndrome [Unknown]
  - Pain of skin [Unknown]
  - Pain [Unknown]
  - Application site rash [Recovered/Resolved]
  - Influenza like illness [Recovered/Resolved]
  - Nausea [Recovered/Resolved]
  - Headache [Unknown]
  - Decreased appetite [Not Recovered/Not Resolved]
  - Diarrhoea [Not Recovered/Not Resolved]
  - Abdominal discomfort [Recovered/Resolved]
  - Anxiety [Unknown]
  - Hyperhidrosis [Unknown]
  - Euphoric mood [Unknown]
  - Malaise [Unknown]
